FAERS Safety Report 4500885-4 (Version None)
Quarter: 2004Q4

REPORT INFORMATION
  Report Type: 
  Country: None (occurrence: None)
  Receive Date: 20041109
  Receipt Date: 20041020
  Transmission Date: 20050328
  Serious: Yes (Hospitalization)
  Sender: FDA-Public Use
  Company Number: ATO-04-0886

PATIENT
  Age: 75 Year
  Sex: Male

DRUGS (7)
  1. TRISENOX [Suspect]
     Indication: MYELODYSPLASTIC SYNDROME
     Dosage: 0.30 MG/KG (0.3 MG/KG, TWICE WEEKLY), IVI
     Route: 042
     Dates: start: 20040607, end: 20040903
  2. CLONIDINE [Concomitant]
  3. HYDROCHLOROTHIAZIDE [Concomitant]
  4. ACETYLSALICYLIC ACID SRT [Concomitant]
  5. DARVOCET [Concomitant]
  6. PRILOSEC [Concomitant]
  7. MAGNESIUM OXIDE (MAGNESIUM OXIDE) [Concomitant]

REACTIONS (6)
  - ABSCESS ORAL [None]
  - ANAEMIA [None]
  - GROIN ABSCESS [None]
  - MUCOSAL INFLAMMATION [None]
  - PYREXIA [None]
  - STAPHYLOCOCCAL INFECTION [None]
